FAERS Safety Report 14967250 (Version 1)
Quarter: 2018Q2

REPORT INFORMATION
  Report Type: Spontaneous
  Country: BR (occurrence: BR)
  Receive Date: 20180604
  Receipt Date: 20180604
  Transmission Date: 20180711
  Serious: Yes (Death, Other)
  Sender: FDA-Public Use
  Company Number: BR-CHEPLA-C20180305

PATIENT
  Age: 28 Year
  Sex: Female

DRUGS (6)
  1. BACTRIM [Concomitant]
     Active Substance: SULFAMETHOXAZOLE\TRIMETHOPRIM
     Indication: WHITE BLOOD CELL COUNT DECREASED
  2. REGENESIS [Concomitant]
  3. DOSS [Concomitant]
     Active Substance: DOCUSATE SODIUM
  4. VESANOID [Suspect]
     Active Substance: TRETINOIN
     Indication: ACUTE PROMYELOCYTIC LEUKAEMIA
     Dosage: 3 TABLET [SIC!] 10 MG TWICE A DAY
     Route: 065
     Dates: start: 20180314
  5. DIPYRONE [Concomitant]
     Active Substance: DIPYRONE
     Indication: PAIN
  6. ACYCLOVIR. [Concomitant]
     Active Substance: ACYCLOVIR
     Indication: HERPES VIRUS INFECTION

REACTIONS (5)
  - Pain [Not Recovered/Not Resolved]
  - Leukaemia recurrent [Not Recovered/Not Resolved]
  - Ear discomfort [Not Recovered/Not Resolved]
  - Headache [Not Recovered/Not Resolved]
  - Exposure during pregnancy [Not Recovered/Not Resolved]
